FAERS Safety Report 4366632-4 (Version None)
Quarter: 2004Q2

REPORT INFORMATION
  Report Type: 
  Country: None (occurrence: None)
  Receive Date: 20040527
  Receipt Date: 20040519
  Transmission Date: 20050107
  Serious: Yes (Life-Threatening, Hospitalization)
  Sender: FDA-Public Use
  Company Number: DE-BRISTOL-MYERS SQUIBB COMPANY-12591319

PATIENT
  Age: 83 Year
  Sex: Female

DRUGS (3)
  1. CAPTOPRIL [Suspect]
  2. HYDROCHLOROTHIAZIDE [Suspect]
  3. CERIVASTATIN [Suspect]

REACTIONS (7)
  - ANGIONEUROTIC OEDEMA [None]
  - BRADYCARDIA [None]
  - HYPOTENSION [None]
  - IMPLANT OBSTRUCTION [None]
  - MIGRATION OF IMPLANT [None]
  - PNEUMOTHORAX [None]
  - RESPIRATORY FAILURE [None]
